FAERS Safety Report 9547479 (Version 1)
Quarter: 2013Q3

REPORT INFORMATION
  Report Type: Spontaneous
  Country: US (occurrence: None)
  Receive Date: 20130919
  Receipt Date: 20130919
  Transmission Date: 20140515
  Serious: Yes (Hospitalization)
  Sender: FDA-Public Use
  Company Number: LMI-2013-00388

PATIENT
  Age: 76 Year
  Sex: Male
  Weight: 118 kg

DRUGS (3)
  1. DEFINITY [Suspect]
     Indication: STRESS ECHOCARDIOGRAM
     Dosage: 1 VIAL OF DEFINITY DILUTED 8.7 ML NORMAL SALINE (2ML) INTRAVENOUS BOLUS
     Route: 040
     Dates: start: 20130905, end: 20130905
  2. LISINOPRIL (LISINOPRIL) [Concomitant]
  3. ZOCOR (SIMVASTATIN) [Concomitant]

REACTIONS (3)
  - Electrocardiogram ST segment elevation [None]
  - Right ventricular dysfunction [None]
  - Anaphylactic shock [None]
